FAERS Safety Report 20852248 (Version 1)
Quarter: 2022Q2

REPORT INFORMATION
  Report Type: Spontaneous
  Country: US (occurrence: US)
  Receive Date: 20220520
  Receipt Date: 20220520
  Transmission Date: 20220721
  Serious: Yes (Death)
  Sender: FDA-Public Use
  Company Number: US-ROCHE-2828929

PATIENT
  Sex: Female

DRUGS (28)
  1. CLONAZEPAM [Suspect]
     Active Substance: CLONAZEPAM
     Indication: Product used for unknown indication
     Route: 065
  2. RITUXAN [Suspect]
     Active Substance: RITUXIMAB
     Indication: Granulomatosis with polyangiitis
     Dosage: 3 DOSES EVERY 6 MONTHS.
     Route: 042
  3. RITUXAN [Suspect]
     Active Substance: RITUXIMAB
     Indication: Sjogren^s syndrome
     Dosage: 3 DOSES EVERY 6 MONTHS.
     Route: 042
  4. RITUXAN [Suspect]
     Active Substance: RITUXIMAB
     Indication: Granulomatosis with polyangiitis
     Dosage: DAY 1, 15 AND 6 MONTHS X 1 YEARS
     Route: 042
  5. RITUXAN [Suspect]
     Active Substance: RITUXIMAB
     Indication: Sjogren^s syndrome
     Dosage: DAY 1, 15 AND 6 MONTHS X 1 YEARS
     Route: 042
  6. ANORO ELLIPTA [Concomitant]
     Active Substance: UMECLIDINIUM BROMIDE\VILANTEROL TRIFENATATE
     Dosage: 62.5-25 MCG INHALATION AEROSOL
     Route: 055
     Dates: start: 20201118
  7. ZYRTEC [Concomitant]
     Active Substance: CETIRIZINE HYDROCHLORIDE
     Route: 048
  8. CHOLECALCIFEROL [Concomitant]
     Active Substance: CHOLECALCIFEROL
     Dosage: 2000 UNITS BY MOUTH 1 TIME EACH DAY.
     Route: 048
  9. CLONOPIN [Concomitant]
     Active Substance: CLONAZEPAM
     Dosage: 1-2 TABLETS 2 TIMES A DAY A DAY 1 AM 2 QHS
     Route: 048
  10. PROZAC [Concomitant]
     Active Substance: FLUOXETINE HYDROCHLORIDE
     Route: 048
     Dates: start: 20190904
  11. FLONASE [Concomitant]
     Active Substance: FLUTICASONE PROPIONATE
     Dosage: ADMINISTER 2 SPRAYS INTO EACH NOSTRIL 1 TIME EACH DAY IF NEEDED.
     Route: 045
     Dates: start: 20191117
  12. FOLVITE [FOLIC ACID] [Concomitant]
     Dosage: TWO TABLE EVERY DAYS
     Route: 048
     Dates: start: 20210319
  13. NORCO [Concomitant]
     Active Substance: ACETAMINOPHEN\HYDROCODONE BITARTRATE
     Dosage: 7.5-3.25 MG PER TABLET
     Route: 048
     Dates: start: 20201222
  14. SYNTHROID [Concomitant]
     Active Substance: LEVOTHYROXINE SODIUM
     Route: 048
  15. LEVOTHROID [Concomitant]
     Active Substance: LEVOTHYROXINE SODIUM
     Route: 048
  16. COZAAR [Concomitant]
     Active Substance: LOSARTAN POTASSIUM
     Route: 048
     Dates: start: 20210430
  17. NALOXONE HCL [Concomitant]
     Active Substance: NALOXONE HYDROCHLORIDE
     Dosage: 4 MG /0.1 ML LIQUID
     Route: 045
     Dates: start: 20201230
  18. MYCOSTATIN [Concomitant]
     Active Substance: NYSTATIN
     Route: 061
     Dates: start: 20201230
  19. PRILOSEC [Concomitant]
     Active Substance: OMEPRAZOLE MAGNESIUM
     Route: 048
  20. PRED FORTE [Concomitant]
     Active Substance: PREDNISOLONE ACETATE
     Dosage: 1 DROP INTO LEFT EYE 3 TIMES A DAY.
     Route: 065
     Dates: start: 20201210
  21. DELTASONE [Concomitant]
     Active Substance: PREDNISONE
     Route: 048
     Dates: start: 20201221
  22. SEROQUEL [Concomitant]
     Active Substance: QUETIAPINE FUMARATE
     Route: 048
     Dates: start: 20200109
  23. ZOCOR [Concomitant]
     Active Substance: SIMVASTATIN
     Route: 048
  24. BACTRIM [Concomitant]
     Active Substance: SULFAMETHOXAZOLE\TRIMETHOPRIM
     Dosage: 800-160 MG
     Route: 048
     Dates: start: 20201203
  25. DESYREL [Concomitant]
     Active Substance: TRAZODONE HYDROCHLORIDE
     Route: 048
  26. EFFEXOR [Concomitant]
     Active Substance: VENLAFAXINE HYDROCHLORIDE
     Dosage: 1-2 CAPSULES BY MOUTH TWICE A DAY 1 AM A QHS
     Route: 048
  27. LATUDA [Concomitant]
     Active Substance: LURASIDONE HYDROCHLORIDE
     Route: 048
  28. SINGULAIR [Concomitant]
     Active Substance: MONTELUKAST SODIUM
     Route: 048
     Dates: start: 20190410

REACTIONS (1)
  - Death [Fatal]
